FAERS Safety Report 9477436 (Version 1)
Quarter: 2013Q3

REPORT INFORMATION
  Report Type: Spontaneous
  Country: DK (occurrence: DK)
  Receive Date: 20130826
  Receipt Date: 20130826
  Transmission Date: 20140515
  Serious: Yes (Death, Hospitalization)
  Sender: FDA-Public Use
  Company Number: DK-ABBOTT-13P-044-1137412-00

PATIENT
  Sex: Male

DRUGS (1)
  1. DUODOPA [Suspect]
     Indication: PARKINSON^S DISEASE
     Dates: start: 200809, end: 20130814

REACTIONS (2)
  - Pneumonia [Fatal]
  - Sepsis [Fatal]
